FAERS Safety Report 9547252 (Version 1)
Quarter: 2013Q3

REPORT INFORMATION
  Report Type: Spontaneous
  Country: US (occurrence: None)
  Receive Date: 20130919
  Receipt Date: 20130919
  Transmission Date: 20140515
  Serious: Yes (Death)
  Sender: FDA-Public Use
  Company Number: 2013-US-000411

PATIENT
  Age: 35 Year
  Sex: Male

DRUGS (1)
  1. FAZACLO [Suspect]
     Route: 048
     Dates: start: 20081118

REACTIONS (1)
  - Myocardial infarction [None]
